FAERS Safety Report 24184168 (Version 1)
Quarter: 2024Q3

REPORT INFORMATION
  Report Type: Spontaneous
  Country: JP (occurrence: JP)
  Receive Date: 20240807
  Receipt Date: 20240807
  Transmission Date: 20241016
  Serious: Yes (Congenital Anomaly, Other)
  Sender: AMGEN
  Company Number: JP-AMGEN-JPNSP2024152039

PATIENT

DRUGS (1)
  1. REPATHA [Suspect]
     Active Substance: EVOLOCUMAB
     Indication: Product used for unknown indication
     Dosage: 140 MILLIGRAM, Q2WK
     Route: 058

REACTIONS (3)
  - Coronary artery thrombosis [Unknown]
  - Coronary artery occlusion [Unknown]
  - Ill-defined disorder [Unknown]
